FAERS Safety Report 23862701 (Version 1)
Quarter: 2024Q2

REPORT INFORMATION
  Report Type: Spontaneous
  Country: US (occurrence: None)
  Receive Date: 20240515
  Receipt Date: 20240515
  Transmission Date: 20240716
  Serious: Yes (Death, Life-Threatening, Hospitalization)
  Sender: FDA-Public Use
  Company Number: None

PATIENT
  Age: 86 Year
  Sex: Male
  Weight: 62.1 kg

DRUGS (1)
  1. VENCLEXTA [Suspect]
     Active Substance: VENETOCLAX
     Indication: Myelodysplastic syndrome
     Dosage: 14 TABLETS ORAL
     Route: 048
     Dates: start: 20240325, end: 20240402

REACTIONS (4)
  - Haemoglobin decreased [None]
  - Platelet count decreased [None]
  - Hospice care [None]
  - Product administration error [None]

NARRATIVE: CASE EVENT DATE: 20240411
